FAERS Safety Report 8525458-8 (Version None)
Quarter: 2012Q3

REPORT INFORMATION
  Report Type: 
  Country: None (occurrence: None)
  Receive Date: 20120720
  Receipt Date: 20120712
  Transmission Date: 20120928
  Serious: Yes (Other)
  Sender: FDA-Public Use
  Company Number: BR-JNJFOC-20120707121

PATIENT
  Sex: Female
  Weight: 72 kg

DRUGS (2)
  1. REMICADE [Suspect]
     Indication: CROHN'S DISEASE
     Dosage: SECOND INFUSION DATE ALSO REPORTED AS 10-JUL-2012
     Route: 042
     Dates: start: 20120712
  2. REMICADE [Suspect]
     Route: 042
     Dates: start: 20120622

REACTIONS (7)
  - MORBID THOUGHTS [None]
  - DYSPNOEA [None]
  - HYPERTENSION [None]
  - HYPERSENSITIVITY [None]
  - URINARY TRACT INFECTION [None]
  - INFUSION RELATED REACTION [None]
  - ALOPECIA [None]
